FAERS Safety Report 20041921 (Version 2)
Quarter: 2021Q4

REPORT INFORMATION
  Report Type: Report from Study
  Country: MX (occurrence: MX)
  Receive Date: 20211108
  Receipt Date: 20211113
  Transmission Date: 20220303
  Serious: Yes (Other)
  Sender: FDA-Public Use
  Company Number: MX-NOVARTISPH-NVSC2021MX254058

PATIENT
  Age: 69 Year
  Sex: Male
  Weight: 78 kg

DRUGS (6)
  1. DIOVAN [Suspect]
     Active Substance: VALSARTAN
     Indication: Hypertension
     Dosage: 1 DF, QD
     Route: 048
     Dates: start: 201402
  2. DIOVAN [Suspect]
     Active Substance: VALSARTAN
     Dosage: 1 DF,  IN THE MORNING AND AT NIGHT
     Route: 048
  3. DIOVAN [Suspect]
     Active Substance: VALSARTAN
     Dosage: 1 DF,  IN THE MORNING AND AT NIGHT
     Route: 048
  4. ATORVASTATIN CALCIUM [Suspect]
     Active Substance: ATORVASTATIN CALCIUM
     Indication: Blood cholesterol abnormal
     Dosage: 1 DF, QD
     Route: 048
     Dates: start: 201002
  5. METOPROLOL [Suspect]
     Active Substance: METOPROLOL
     Indication: Product used for unknown indication
     Dosage: 0.5 DF, BID
     Route: 048
     Dates: start: 201103
  6. ACENOCOUMAROL [Concomitant]
     Active Substance: ACENOCOUMAROL
     Indication: Anticoagulant therapy
     Dosage: UNK (3/4 TABLET ON MONDAYS, WEDNESDAYS, FRIDAYS AND SUNDAYS. 1 TABLET ON TUESDAY, THURSDAY AND SATUR
     Route: 048
     Dates: start: 201411

REACTIONS (5)
  - Thrombosis [Recovered/Resolved]
  - Hernia [Not Recovered/Not Resolved]
  - Coagulopathy [Unknown]
  - Peripheral swelling [Not Recovered/Not Resolved]
  - Off label use [Not Recovered/Not Resolved]

NARRATIVE: CASE EVENT DATE: 20141101
